FAERS Safety Report 12426973 (Version 2)
Quarter: 2016Q4

REPORT INFORMATION
  Report Type: Spontaneous
  Country: US (occurrence: US)
  Receive Date: 20160601
  Receipt Date: 20161219
  Transmission Date: 20170207
  Serious: No
  Sender: FDA-Public Use
  Company Number: US-SEPTODONT-201603291

PATIENT
  Age: 5 Decade
  Sex: Female
  Weight: 72 kg

DRUGS (2)
  1. CARBOCAINE [Suspect]
     Active Substance: MEPIVACAINE HYDROCHLORIDE
     Indication: LOCAL ANAESTHESIA
     Dosage: 1 CARPULE IAN/LINGUAL BLOCK VIA TRADITIONAL TECHNIQUE IN MANDIBULAR RIGHT QUADRANT ON TOOTH #30
     Route: 004
  2. SEPTOCAINE AND EPINEPHRINE [Suspect]
     Active Substance: ARTICAINE HYDROCHLORIDE\EPINEPHRINE BITARTRATE
     Indication: LOCAL ANAESTHESIA
     Dosage: 1 CARTRIDGE IAN/LINGUAL BLOCK VIA TRADITIONAL TECHNIQUE IN MANDIBULAR RIGHT QUADRANT ON TOOTH #30
     Route: 004

REACTIONS (2)
  - Pain [Unknown]
  - Hyperaesthesia [Unknown]
